FAERS Safety Report 4845827-7 (Version None)
Quarter: 2005Q4

REPORT INFORMATION
  Report Type: 
  Country: None (occurrence: None)
  Receive Date: 20051206
  Receipt Date: 20050805
  Transmission Date: 20060501
  Serious: Yes (Other)
  Sender: FDA-Public Use
  Company Number: US-GLAXOSMITHKLINE-A0569146A

PATIENT
  Age: 19 Year
  Sex: Female
  Weight: 43.2 kg

DRUGS (1)
  1. WELLBUTRIN XL [Suspect]
     Indication: DEPRESSION
     Dosage: 300MG PER DAY
     Route: 048
     Dates: start: 20050304, end: 20050803

REACTIONS (2)
  - CIRCULATORY COLLAPSE [None]
  - CONVULSION [None]
